FAERS Safety Report 4389966-6 (Version None)
Quarter: 2004Q2

REPORT INFORMATION
  Report Type: 
  Country: None (occurrence: None)
  Receive Date: 20040630
  Receipt Date: 20040621
  Transmission Date: 20050107
  Serious: Yes (Death)
  Sender: FDA-Public Use
  Company Number: 2004UW12897

PATIENT
  Age: 58 Year
  Sex: Female

DRUGS (1)
  1. ARIMIDEX [Suspect]
     Dosage: NI

REACTIONS (3)
  - BLINDNESS UNILATERAL [None]
  - BREAST CANCER [None]
  - MALIGNANT NEOPLASM PROGRESSION [None]
